FAERS Safety Report 7085295-0 (Version None)
Quarter: 2010Q4

REPORT INFORMATION
  Report Type: 
  Country: None (occurrence: None)
  Receive Date: 20101105
  Receipt Date: 20101028
  Transmission Date: 20110411
  Serious: Yes (Other)
  Sender: FDA-Public Use
  Company Number: CH-PFIZER INC-2010118373

PATIENT
  Age: 38 Year
  Sex: Male
  Weight: 79 kg

DRUGS (1)
  1. VIAGRA [Suspect]
     Dosage: 100 MG, SINGLE
     Route: 048
     Dates: start: 20100825, end: 20100825

REACTIONS (6)
  - ALANINE AMINOTRANSFERASE INCREASED [None]
  - ASPARTATE AMINOTRANSFERASE INCREASED [None]
  - DERMATITIS ALLERGIC [None]
  - GAMMA-GLUTAMYLTRANSFERASE INCREASED [None]
  - HAEMATOMA [None]
  - PRURITUS [None]
